FAERS Safety Report 18783386 (Version 1)
Quarter: 2021Q1

REPORT INFORMATION
  Report Type: Spontaneous
  Country: NO (occurrence: NO)
  Receive Date: 20210125
  Receipt Date: 20210125
  Transmission Date: 20210419
  Serious: Yes (Disabling)
  Sender: FDA-Public Use
  Company Number: NO-EMD SERONO-E2B_90082084

PATIENT
  Age: 56 Year
  Sex: Male
  Weight: 100 kg

DRUGS (3)
  1. MAVENCLAD [Suspect]
     Active Substance: CLADRIBINE
     Indication: MULTIPLE SCLEROSIS
  2. MAVENCLAD [Suspect]
     Active Substance: CLADRIBINE
     Indication: DEPRESSION
  3. MAVENCLAD [Suspect]
     Active Substance: CLADRIBINE
     Indication: IMMUNISATION
     Dates: start: 20201117

REACTIONS (4)
  - Bedridden [Unknown]
  - Dizziness [Recovered/Resolved with Sequelae]
  - Multiple sclerosis [Recovered/Resolved with Sequelae]
  - Fatigue [Recovered/Resolved with Sequelae]
